FAERS Safety Report 10391966 (Version 3)
Quarter: 2014Q3

REPORT INFORMATION
  Report Type: Report from Study
  Country: US (occurrence: US)
  Receive Date: 20140819
  Receipt Date: 20140908
  Transmission Date: 20150326
  Serious: Yes (Hospitalization)
  Sender: FDA-Public Use
  Company Number: PHEH2014US016013

PATIENT
  Age: 54 Year
  Sex: Female
  Weight: 54.42 kg

DRUGS (9)
  1. GABAPENTIN. [Concomitant]
     Active Substance: GABAPENTIN
     Indication: PAIN
  2. IMITREX [Concomitant]
     Active Substance: SUMATRIPTAN\SUMATRIPTAN SUCCINATE
     Indication: MIGRAINE
  3. GILENYA [Suspect]
     Active Substance: FINGOLIMOD HYDROCHLORIDE
     Indication: MULTIPLE SCLEROSIS
     Dosage: 0.5 MG, QD
     Route: 048
     Dates: start: 20140807, end: 20140808
  4. TOPAMAX [Concomitant]
     Active Substance: TOPIRAMATE
     Indication: MIGRAINE
  5. SYNTHROID [Concomitant]
     Active Substance: LEVOTHYROXINE SODIUM
     Indication: THYROID DISORDER
  6. DETROL LA [Concomitant]
     Active Substance: TOLTERODINE TARTRATE
  7. AMPYRA [Concomitant]
     Active Substance: DALFAMPRIDINE
  8. PROTONIX [Concomitant]
     Active Substance: PANTOPRAZOLE SODIUM
  9. ACETAMINOPHEN W/HYDROCODONE [Concomitant]
     Active Substance: ACETAMINOPHEN\HYDROCODONE

REACTIONS (12)
  - Red cell distribution width increased [Unknown]
  - White blood cell count decreased [Unknown]
  - Electrocardiogram QT prolonged [Unknown]
  - Atrioventricular block [Unknown]
  - Monocyte percentage increased [Unknown]
  - Aspartate aminotransferase decreased [Unknown]
  - Haematocrit decreased [Unknown]
  - Blood urea increased [Unknown]
  - Haemoglobin decreased [Unknown]
  - Blood pressure increased [Unknown]
  - Bradycardia [Recovered/Resolved]
  - Blood chloride increased [Unknown]

NARRATIVE: CASE EVENT DATE: 20140807
